FAERS Safety Report 25234425 (Version 1)
Quarter: 2025Q2

REPORT INFORMATION
  Report Type: Spontaneous
  Country: AR (occurrence: AR)
  Receive Date: 20250424
  Receipt Date: 20250424
  Transmission Date: 20250717
  Serious: Yes (Other)
  Sender: Haleon PLC
  Company Number: AR-002147023-NVSC2022AR092524

PATIENT
  Age: 62 Year
  Sex: Female

DRUGS (3)
  1. DICLOFENAC [Suspect]
     Active Substance: DICLOFENAC
     Indication: Product used for unknown indication
     Route: 065
  2. COSENTYX [Suspect]
     Active Substance: SECUKINUMAB
     Indication: Psoriasis
     Dosage: 300 MG, QMO
     Route: 050
     Dates: start: 20181019, end: 20220228
  3. COSENTYX [Suspect]
     Active Substance: SECUKINUMAB
     Indication: Psoriatic arthropathy

REACTIONS (18)
  - Osteochondrosis [Unknown]
  - Laryngeal oedema [Unknown]
  - Swelling [Unknown]
  - Respiratory distress [Unknown]
  - Dyspnoea [Unknown]
  - Back pain [Unknown]
  - Inflammation [Unknown]
  - Crying [Unknown]
  - Arthralgia [Unknown]
  - Oedema peripheral [Unknown]
  - Drug hypersensitivity [Unknown]
  - Synovial cyst [Unknown]
  - Pain in extremity [Unknown]
  - Swelling face [Unknown]
  - Chondropathy [Unknown]
  - Pain [Unknown]
  - Psoriasis [Unknown]
  - Drug ineffective [Unknown]
